FAERS Safety Report 16917977 (Version 2)
Quarter: 2019Q4

REPORT INFORMATION
  Report Type: Spontaneous
  Country: NL (occurrence: NL)
  Receive Date: 20191015
  Receipt Date: 20191022
  Transmission Date: 20200122
  Serious: Yes (Life-Threatening, Hospitalization, Other)
  Sender: FDA-Public Use
  Company Number: NL-LUPIN PHARMACEUTICALS INC.-2019-06541

PATIENT
  Age: 68 Year
  Sex: Female

DRUGS (4)
  1. PREDNISONE. [Concomitant]
     Active Substance: PREDNISONE
     Indication: RENAL TRANSPLANT FAILURE
     Dosage: UNK
     Route: 065
  2. TACROLIMUS. [Interacting]
     Active Substance: TACROLIMUS
     Indication: RENAL TRANSPLANT FAILURE
     Dosage: UNK
     Route: 065
  3. FENTANYL. [Interacting]
     Active Substance: FENTANYL
     Indication: PRODUCT USED FOR UNKNOWN INDICATION
     Dosage: UNK
     Route: 042
  4. QUETIAPINE FUMARATE. [Suspect]
     Active Substance: QUETIAPINE FUMARATE
     Indication: AGITATION
     Dosage: UNK
     Route: 065

REACTIONS (6)
  - Drug interaction [Unknown]
  - Renal failure [Recovered/Resolved]
  - Cardiac arrest [Recovered/Resolved]
  - Encephalopathy [Recovered/Resolved]
  - Serotonin syndrome [Recovered/Resolved]
  - Rhabdomyolysis [Recovered/Resolved]
